FAERS Safety Report 6069811-3 (Version None)
Quarter: 2009Q1

REPORT INFORMATION
  Report Type: 
  Country: None (occurrence: None)
  Receive Date: 20090209
  Receipt Date: 20090129
  Transmission Date: 20090719
  Serious: Yes (Other)
  Sender: FDA-Public Use
  Company Number: GB-AMGEN-UK331062

PATIENT
  Sex: Female

DRUGS (4)
  1. NEUPOGEN [Suspect]
     Indication: CHEMOTHERAPY
     Route: 065
     Dates: start: 20090123
  2. FLUOROURACIL [Concomitant]
     Route: 065
  3. CYCLOPHOSPHAMIDE [Concomitant]
     Route: 065
  4. EPIRUBICIN [Concomitant]
     Route: 065

REACTIONS (6)
  - ANAPHYLACTIC REACTION [None]
  - DIARRHOEA [None]
  - INJECTION SITE ERYTHEMA [None]
  - INJECTION SITE RASH [None]
  - SWELLING FACE [None]
  - SWOLLEN TONGUE [None]
